FAERS Safety Report 9092703 (Version 1)
Quarter: 2013Q1

REPORT INFORMATION
  Report Type: Spontaneous
  Country: US (occurrence: None)
  Receive Date: 20130213
  Receipt Date: 20130213
  Transmission Date: 20140127
  Serious: Yes (Other)
  Sender: FDA-Public Use
  Company Number: None

PATIENT
  Age: 41 Year
  Sex: Female

DRUGS (1)
  1. FENTANYL [Suspect]
     Route: 061

REACTIONS (5)
  - Somnolence [None]
  - Nausea [None]
  - Dyspnoea [None]
  - Mydriasis [None]
  - Product quality issue [None]
